FAERS Safety Report 21535849 (Version 1)
Quarter: 2022Q4

REPORT INFORMATION
  Report Type: Spontaneous
  Country: US (occurrence: None)
  Receive Date: 20221031
  Receipt Date: 20221031
  Transmission Date: 20230112
  Serious: Yes (Hospitalization)
  Sender: FDA-Public Use
  Company Number: None

PATIENT

DRUGS (1)
  1. BARICITINIB [Suspect]
     Active Substance: BARICITINIB

REACTIONS (5)
  - Dyspnoea [None]
  - Oxygen saturation decreased [None]
  - Cough [None]
  - SARS-CoV-2 test positive [None]
  - Pulmonary embolism [None]

NARRATIVE: CASE EVENT DATE: 20210916
